FAERS Safety Report 5954145-5 (Version None)
Quarter: 2008Q4

REPORT INFORMATION
  Report Type: 
  Country: None (occurrence: None)
  Receive Date: 20081117
  Receipt Date: 20080417
  Transmission Date: 20090506
  Serious: Yes (Other)
  Sender: FDA-Public Use
  Company Number: US-JNJFOC-20081103075

PATIENT
  Sex: Male

DRUGS (2)
  1. IBUPROFEN TABLETS [Suspect]
     Indication: PAIN
  2. IBUPROFEN TABLETS [Suspect]
     Indication: INFLAMMATION

REACTIONS (1)
  - BARRETT'S OESOPHAGUS [None]
